FAERS Safety Report 8923518 (Version 2)
Quarter: 2013Q1

REPORT INFORMATION
  Report Type: Report from Study
  Country: JP (occurrence: JP)
  Receive Date: 20121124
  Receipt Date: 20130207
  Transmission Date: 20140127
  Serious: Yes (Other)
  Sender: FDA-Public Use
  Company Number: JP-009507513-1211JPN006986

PATIENT
  Age: 60 Year
  Sex: Female
  Weight: 62 kg

DRUGS (14)
  1. PEGINTRON [Suspect]
     Indication: CHRONIC HEPATITIS C
     Dosage: 1.5 UG/KG/WEEK
     Route: 058
     Dates: start: 20120507, end: 20120814
  2. REBETOL [Suspect]
     Indication: CHRONIC HEPATITIS C
     Dosage: 800 MG, QD
     Route: 048
     Dates: start: 20120507, end: 20120618
  3. REBETOL [Suspect]
     Dosage: 600 MG, QD
     Route: 048
     Dates: start: 20120619, end: 20120625
  4. REBETOL [Suspect]
     Dosage: 200 MG, QD
     Route: 048
     Dates: start: 20120703, end: 20120708
  5. REBETOL [Suspect]
     Dosage: 200 MG, QD
     Route: 048
     Dates: start: 20120717, end: 20120819
  6. REBETOL [Suspect]
     Dosage: 400 MG, QD
     Route: 048
     Dates: start: 20120626, end: 20120702
  7. TELAVIC [Suspect]
     Indication: CHRONIC HEPATITIS C
     Dosage: 2250 MG, QD
     Route: 048
     Dates: start: 20120507, end: 20120702
  8. TELAVIC [Suspect]
     Dosage: 1500 MG, QD
     Route: 048
     Dates: start: 20120703, end: 20120711
  9. ALLEGRA [Concomitant]
     Indication: PROPHYLAXIS
     Dosage: 120 MG, QD
     Route: 048
     Dates: start: 20120612, end: 20120819
  10. ZYLORIC [Concomitant]
     Indication: PROPHYLAXIS
     Dosage: 200 MG, QD
     Route: 048
     Dates: end: 20120827
  11. RESTAMIN CORTISONE [Concomitant]
     Indication: PROPHYLAXIS
     Dosage: UNK, PRN
     Route: 061
     Dates: end: 20120731
  12. MYSER (DIFLUPREDNATE) [Concomitant]
     Indication: PROPHYLAXIS
     Dosage: UNK, PRN
     Route: 061
     Dates: end: 20120731
  13. HEPARINOID [Concomitant]
     Indication: PROPHYLAXIS
     Dosage: UNK, PRN
     Route: 061
     Dates: end: 20120731
  14. VOLTAREN SR [Concomitant]
     Indication: PROPHYLAXIS
     Dosage: 37.5 MG, QD
     Route: 048
     Dates: end: 20120819

REACTIONS (2)
  - Anaemia [Recovering/Resolving]
  - Anaemia [Not Recovered/Not Resolved]
